FAERS Safety Report 25843297 (Version 2)
Quarter: 2025Q3

REPORT INFORMATION
  Report Type: Spontaneous
  Country: US (occurrence: US)
  Receive Date: 20250924
  Receipt Date: 20250930
  Transmission Date: 20251021
  Serious: No
  Sender: SANOFI AVENTIS
  Company Number: US-SANOFI-02660037

PATIENT
  Sex: Female

DRUGS (3)
  1. DUPIXENT [Suspect]
     Active Substance: DUPILUMAB
     Indication: Chronic spontaneous urticaria
     Route: 058
     Dates: start: 202508, end: 202508
  2. DUPIXENT [Suspect]
     Active Substance: DUPILUMAB
     Dosage: 300 MG, QOW
     Route: 058
     Dates: start: 20250902
  3. PEPCID [Concomitant]
     Active Substance: FAMOTIDINE

REACTIONS (7)
  - Viral test positive [Recovered/Resolved]
  - Petechiae [Unknown]
  - Haemangioma of skin [Recovered/Resolved]
  - Eyelid oedema [Unknown]
  - Oedema [Unknown]
  - Urticaria [Not Recovered/Not Resolved]
  - Skin discolouration [Recovered/Resolved]

NARRATIVE: CASE EVENT DATE: 20250101
